FAERS Safety Report 25776643 (Version 1)
Quarter: 2025Q3

REPORT INFORMATION
  Report Type: Spontaneous
  Country: US (occurrence: US)
  Receive Date: 20250909
  Receipt Date: 20250909
  Transmission Date: 20251021
  Serious: No
  Sender: DOMPE FARMACEUTICI
  Company Number: US-FARMAPROD-202503-0821

PATIENT
  Sex: Female

DRUGS (9)
  1. OXERVATE [Suspect]
     Active Substance: CENEGERMIN-BKBJ
     Indication: Neurotrophic keratopathy
     Route: 047
     Dates: start: 20250303
  2. PROGESTERONE [Concomitant]
     Active Substance: PROGESTERONE
  3. METOPROLOL SUCCINATE [Concomitant]
     Active Substance: METOPROLOL SUCCINATE
  4. BUPROPION HYDROCHLORIDE [Concomitant]
     Active Substance: BUPROPION HYDROCHLORIDE
  5. ESTRADIOL [Concomitant]
     Active Substance: ESTRADIOL
  6. LEVOTHYROXINE SODIUM [Concomitant]
     Active Substance: LEVOTHYROXINE SODIUM
  7. GABAPENTIN [Concomitant]
     Active Substance: GABAPENTIN
  8. CLONAZEPAM [Concomitant]
     Active Substance: CLONAZEPAM
  9. ZIPRASIDONE HYDROCHLORIDE [Concomitant]
     Active Substance: ZIPRASIDONE HYDROCHLORIDE

REACTIONS (5)
  - Wrong technique in product usage process [Unknown]
  - Eye irritation [Unknown]
  - Eye swelling [Unknown]
  - Eye pain [Unknown]
  - Eye discharge [Unknown]
